FAERS Safety Report 7653086-5 (Version None)
Quarter: 2011Q3

REPORT INFORMATION
  Report Type: 
  Country: None (occurrence: None)
  Receive Date: 20110722
  Receipt Date: 20101007
  Transmission Date: 20111222
  Serious: Yes (Other)
  Sender: FDA-Public Use
  Company Number: UTC-001529

PATIENT
  Sex: Female
  Weight: 72.6 kg

DRUGS (2)
  1. REMODULIN [Suspect]
     Dosage: 96.48 UG/KG (0.067 UG/KG, 1 IN 1 MIN), INTRAVENOUS
     Route: 042
  2. ADCIRCA [Concomitant]

REACTIONS (1)
  - DEVICE RELATED INFECTION [None]
